FAERS Safety Report 10177695 (Version 1)
Quarter: 2014Q2

REPORT INFORMATION
  Report Type: Spontaneous
  Country: US (occurrence: US)
  Receive Date: 20140516
  Receipt Date: 20140516
  Transmission Date: 20141212
  Serious: No
  Sender: FDA-Public Use
  Company Number: US-SA-2014SA017668

PATIENT
  Age: 45 Year
  Sex: Male

DRUGS (2)
  1. APIDRA [Suspect]
     Indication: TYPE 1 DIABETES MELLITUS
     Dosage: PRODUCT STARTED 2.5 YEARS AGO. DOSE:15 UNIT(S)
     Route: 058
  2. HUMALOG [Suspect]
     Route: 065

REACTIONS (1)
  - Rheumatoid arthritis [Unknown]
